FAERS Safety Report 7673641-6 (Version None)
Quarter: 2011Q3

REPORT INFORMATION
  Report Type: 
  Country: None (occurrence: None)
  Receive Date: 20110804
  Receipt Date: 20110720
  Transmission Date: 20111222
  Serious: Yes (Hospitalization)
  Sender: FDA-Public Use
  Company Number: 2011MA009201

PATIENT
  Age: 43 Year
  Sex: Female

DRUGS (1)
  1. PHENYTOIN [Suspect]
     Indication: CONVULSION
     Dosage: 350 MG, QD, IV
     Route: 042

REACTIONS (14)
  - RESTLESSNESS [None]
  - ANTICONVULSANT DRUG LEVEL BELOW THERAPEUTIC [None]
  - COGNITIVE DISORDER [None]
  - SOMNOLENCE [None]
  - ANTICONVULSANT DRUG LEVEL ABOVE THERAPEUTIC [None]
  - APHASIA [None]
  - DISTURBANCE IN ATTENTION [None]
  - PERSEVERATION [None]
  - ABNORMAL BEHAVIOUR [None]
  - DISORIENTATION [None]
  - ACTIVITIES OF DAILY LIVING IMPAIRED [None]
  - MEMORY IMPAIRMENT [None]
  - ANTEROGRADE AMNESIA [None]
  - INCONTINENCE [None]
